FAERS Safety Report 7721904-8 (Version None)
Quarter: 2011Q3

REPORT INFORMATION
  Report Type: 
  Country: None (occurrence: None)
  Receive Date: 20110831
  Receipt Date: 20110826
  Transmission Date: 20111222
  Serious: Yes (Life-Threatening, Hospitalization)
  Sender: FDA-Public Use
  Company Number: AU-B.I. PHARMACEUTICALS,INC./RIDGEFIELD-2011-AU-01013AU

PATIENT
  Age: 84 Year
  Sex: Male

DRUGS (2)
  1. PRADAXA [Suspect]
     Dosage: 220 MG
  2. ASPIRIN [Suspect]
     Dates: start: 20110824

REACTIONS (2)
  - GASTROINTESTINAL HAEMORRHAGE [None]
  - CEREBROVASCULAR ACCIDENT [None]
